FAERS Safety Report 12459226 (Version 5)
Quarter: 2017Q3

REPORT INFORMATION
  Report Type: Spontaneous
  Country: JP (occurrence: JP)
  Receive Date: 20160613
  Receipt Date: 20170807
  Transmission Date: 20171127
  Serious: Yes (Death, Other)
  Sender: FDA-Public Use
  Company Number: JP-BRISTOL-MYERS SQUIBB COMPANY-BMS-2016-045495

PATIENT
  Age: 85 Year
  Sex: Male

DRUGS (5)
  1. OPDIVO [Suspect]
     Active Substance: NIVOLUMAB
     Indication: NON-SMALL CELL LUNG CANCER RECURRENT
     Dosage: 160 MG, QD
     Route: 041
     Dates: start: 20160530, end: 20160530
  2. HEPARIN SODIUM. [Suspect]
     Active Substance: HEPARIN SODIUM
     Indication: STREPTOCOCCUS TEST
     Dosage: 10000 IU, UNK
     Route: 041
     Dates: start: 20160531, end: 20160607
  3. DECADRON [Suspect]
     Active Substance: DEXAMETHASONE
     Indication: PRODUCT USED FOR UNKNOWN INDICATION
     Dosage: 6.60 MG, UNK
     Route: 041
     Dates: start: 20160606, end: 20160607
  4. PALUX [Suspect]
     Active Substance: ALPROSTADIL
     Indication: PAIN
     Dosage: 10 UNK, UNK
     Route: 042
     Dates: start: 20160531, end: 20160607
  5. DECADRON [Suspect]
     Active Substance: DEXAMETHASONE
     Indication: LUNG NEOPLASM MALIGNANT
     Dosage: 1.65 MG, UNK
     Route: 041
     Dates: start: 20160603, end: 20160605

REACTIONS (4)
  - Transfusion [Unknown]
  - Gastrointestinal haemorrhage [Fatal]
  - Pneumonia [Unknown]
  - Peripheral arterial occlusive disease [Unknown]

NARRATIVE: CASE EVENT DATE: 2016
